FAERS Safety Report 8521002-X (Version None)
Quarter: 2012Q3

REPORT INFORMATION
  Report Type: 
  Country: None (occurrence: None)
  Receive Date: 20120719
  Receipt Date: 20120716
  Transmission Date: 20120928
  Serious: Yes (Other)
  Sender: FDA-Public Use
  Company Number: US-PFIZER INC-2012171544

PATIENT
  Sex: Female
  Weight: 41 kg

DRUGS (2)
  1. NEURONTIN [Suspect]
     Dosage: 1200MG IN MORNING AND 800MG AT NIGHT
     Dates: start: 20111018, end: 20111001
  2. NEURONTIN [Suspect]
     Dosage: UNK
     Dates: start: 20120201

REACTIONS (1)
  - GASTRIC POLYPS [None]
